FAERS Safety Report 8805114 (Version 2)
Quarter: 2012Q4

REPORT INFORMATION
  Report Type: 
  Country: US (occurrence: US)
  Receive Date: 20120924
  Receipt Date: 20121213
  Transmission Date: 20130627
  Serious: No
  Sender: FDA-Public Use
  Company Number: US-ALLERGAN-1210784US

PATIENT
  Age: 86 Year
  Sex: Female

DRUGS (4)
  1. LUMIGAN� 0.01% [Suspect]
     Indication: GLAUCOMA
     Dosage: 2 Gtt, UNK
     Route: 047
     Dates: start: 2011
  2. RESTASIS� [Concomitant]
     Indication: DRY EYES
     Dosage: 2 Gtt, bid
     Route: 047
     Dates: start: 201202
  3. REFRESH PLUS [Concomitant]
     Indication: DRY EYES
     Dosage: 2 Gtt, prn
     Route: 047
  4. HYDROCHLOROTHIAZIDE [Concomitant]
     Indication: BLOOD PRESSURE HIGH
     Dosage: 12.5 mg, UNK

REACTIONS (7)
  - Asthenopia [Unknown]
  - Eye disorder [Unknown]
  - Hair growth abnormal [Unknown]
  - Hair texture abnormal [Unknown]
  - Iris disorder [Unknown]
  - Iris hyperpigmentation [Unknown]
  - Growth of eyelashes [Unknown]
